FAERS Safety Report 9352004 (Version 1)
Quarter: 2013Q2

REPORT INFORMATION
  Report Type: Spontaneous
  Country: US (occurrence: US)
  Receive Date: 20130617
  Receipt Date: 20130617
  Transmission Date: 20140414
  Serious: No
  Sender: FDA-Public Use
  Company Number: US-BIOGENIDEC-2013BI053605

PATIENT
  Sex: Female

DRUGS (3)
  1. TYSABRI [Suspect]
     Indication: MULTIPLE SCLEROSIS
     Route: 042
     Dates: start: 20090710, end: 20130506
  2. BENADRYL [Concomitant]
     Indication: PREMEDICATION
     Route: 042
     Dates: start: 2009, end: 2013
  3. ADVIL [Concomitant]
     Indication: RHEUMATOID ARTHRITIS

REACTIONS (8)
  - Gastric ulcer [Unknown]
  - Diabetes mellitus [Not Recovered/Not Resolved]
  - Aphasia [Recovered/Resolved]
  - Glaucoma [Unknown]
  - Multiple sclerosis relapse [Not Recovered/Not Resolved]
  - Hypertension [Unknown]
  - Candida infection [Recovered/Resolved]
  - Kidney infection [Recovered/Resolved]
